FAERS Safety Report 8426188-3 (Version None)
Quarter: 2012Q2

REPORT INFORMATION
  Report Type: 
  Country: None (occurrence: None)
  Receive Date: 20120323
  Receipt Date: 20110418
  Transmission Date: 20120825
  Serious: Yes (Hospitalization)
  Sender: FDA-Public Use
  Company Number: 163-21880-11021603

PATIENT
  Age: 72 Year
  Sex: Male
  Weight: 103.8737 kg

DRUGS (15)
  1. POTASSIUM CHLORIDE [Concomitant]
  2. GLYBURIDE [Concomitant]
  3. PREDNISONE [Concomitant]
  4. ASPIRIN [Concomitant]
  5. MUCINEX [Concomitant]
  6. LEVAQUIN [Concomitant]
  7. COLACE (DOCUSATE SODIUM) [Concomitant]
  8. RAPAFLO (SILODOSIN) [Concomitant]
  9. PRO-AIR HFA (PROCATEROL HYDROCHLORIDE) [Concomitant]
  10. UROXATRAL [Concomitant]
  11. DECADRON [Concomitant]
  12. CALCIUM PLUS VITAMIN D (CALCIUM D3 ^STADA^) [Concomitant]
  13. VITAMIN B6 [Concomitant]
  14. REVLIMID [Suspect]
     Indication: MULTIPLE MYELOMA
     Dosage: 25 MG, DAILY M-F FOR 3 WKS ON + 1 WK OFF, PO
     Route: 048
     Dates: start: 20100907, end: 20110211
  15. REVLIMID [Suspect]
     Indication: MULTIPLE MYELOMA
     Dosage: 25 MG, DAILY M-F FOR 3 WKS ON + 1 WK OFF, PO
     Route: 048
     Dates: start: 20110314

REACTIONS (1)
  - PNEUMONIA [None]
